FAERS Safety Report 17409249 (Version 3)
Quarter: 2020Q1

REPORT INFORMATION
  Report Type: Spontaneous
  Country: GB (occurrence: GB)
  Receive Date: 20200212
  Receipt Date: 20200323
  Transmission Date: 20200409
  Serious: Yes (Hospitalization, Other)
  Sender: FDA-Public Use
  Company Number: NVSC2020GB034710

PATIENT
  Age: 67 Year
  Sex: Female
  Weight: 61 kg

DRUGS (4)
  1. BISOPROLOL FUMARATE. [Suspect]
     Active Substance: BISOPROLOL FUMARATE
     Indication: PALPITATIONS
     Dosage: 2.5 MG, QD (ONCE IN MORNING) (HAD BEEN ON FOR 3 MONTHS)
     Route: 048
     Dates: start: 20191001
  2. PARACETAMOL [Concomitant]
     Active Substance: ACETAMINOPHEN
     Indication: PRODUCT USED FOR UNKNOWN INDICATION
     Dosage: UNK
     Route: 065
  3. BISOPROLOL FUMARATE. [Suspect]
     Active Substance: BISOPROLOL FUMARATE
     Dosage: 1 MG, QD
     Route: 065
  4. BISOPROLOL FUMARATE. [Suspect]
     Active Substance: BISOPROLOL FUMARATE
     Dosage: 1.25 MG, UNKNOWN
     Route: 065

REACTIONS (9)
  - Product use in unapproved indication [Unknown]
  - Palpitations [Unknown]
  - Cerebrovascular accident [Unknown]
  - Depressed level of consciousness [Unknown]
  - Insomnia [Unknown]
  - Hypoaesthesia [Unknown]
  - Anxiety [Unknown]
  - Blood pressure decreased [Unknown]
  - Chest pain [Unknown]

NARRATIVE: CASE EVENT DATE: 20191001
